FAERS Safety Report 9351230 (Version 1)
Quarter: 2013Q2

REPORT INFORMATION
  Report Type: Spontaneous
  Country: VE (occurrence: VE)
  Receive Date: 20130617
  Receipt Date: 20130617
  Transmission Date: 20140414
  Serious: Yes (Other)
  Sender: FDA-Public Use
  Company Number: VE-PFIZER INC-2013176170

PATIENT
  Age: 79 Year
  Sex: Female

DRUGS (1)
  1. CADUET [Suspect]
     Dosage: 1 DF (5 MG) ONCE DAILY

REACTIONS (2)
  - Cardiac disorder [Unknown]
  - Dyspnoea [Unknown]
